FAERS Safety Report 25974763 (Version 1)
Quarter: 2025Q4

REPORT INFORMATION
  Report Type: Spontaneous
  Country: US (occurrence: US)
  Receive Date: 20251029
  Receipt Date: 20251029
  Transmission Date: 20260118
  Serious: Yes (Hospitalization)
  Sender: AMGEN
  Company Number: US-AMGEN-USASP2025210608

PATIENT
  Age: 76 Year
  Sex: Male

DRUGS (3)
  1. REPATHA [Suspect]
     Active Substance: EVOLOCUMAB
     Indication: Myocardial infarction
     Dosage: UNK (STRENGTH: 140 MILLIGRAM PER MILLILITRE)
     Route: 065
     Dates: start: 202404
  2. REPATHA [Suspect]
     Active Substance: EVOLOCUMAB
     Indication: Stent placement
     Dosage: UNK (STRENGTH: 140 MILLIGRAM PER MILLILITRE)
     Route: 065
  3. CLOPIDOGREL [Concomitant]
     Active Substance: CLOPIDOGREL BISULFATE
     Dosage: 75 MILLIGRAM

REACTIONS (6)
  - Cerebrovascular accident [Unknown]
  - Amnesia [Unknown]
  - Therapy interrupted [Unknown]
  - Wrong technique in product usage process [Unknown]
  - Device difficult to use [Unknown]
  - Drug dose omission by device [Unknown]

NARRATIVE: CASE EVENT DATE: 20250101
